FAERS Safety Report 14286863 (Version 4)
Quarter: 2018Q4

REPORT INFORMATION
  Report Type: Spontaneous
  Country: GB (occurrence: GB)
  Receive Date: 20171214
  Receipt Date: 20181210
  Transmission Date: 20190204
  Serious: Yes (Death, Other)
  Sender: FDA-Public Use
  Company Number: GB-ASTRAZENECA-2017SF26586

PATIENT
  Age: 75 Year
  Sex: Female
  Weight: 54 kg

DRUGS (13)
  1. FASLODEX [Suspect]
     Active Substance: FULVESTRANT
     Indication: BREAST CANCER METASTATIC
     Dosage: ADDITIONAL 500 MG DOSE GIVEN TWO WEEKS AFTER THE INITIAL DOSE
     Route: 058
  2. ANASTROZOLE. [Suspect]
     Active Substance: ANASTROZOLE
     Indication: OESTROGEN RECEPTOR POSITIVE BREAST CANCER
     Route: 048
  3. DENOSUMAB [Concomitant]
     Active Substance: DENOSUMAB
     Indication: OESTROGEN RECEPTOR POSITIVE BREAST CANCER
  4. EXEMESTANE. [Concomitant]
     Active Substance: EXEMESTANE
     Dates: start: 200912
  5. TAMOXIFEN [Suspect]
     Active Substance: TAMOXIFEN
     Indication: OESTROGEN RECEPTOR POSITIVE BREAST CANCER
     Route: 048
     Dates: start: 200912
  6. IBANDRONATE SODIUM. [Concomitant]
     Active Substance: IBANDRONATE SODIUM
     Indication: OESTROGEN RECEPTOR POSITIVE BREAST CANCER
  7. FERROUS SULPHATE ANHYDROUS [Concomitant]
  8. VITAMIN D3 [Concomitant]
     Active Substance: CHOLECALCIFEROL
  9. LOPERAMIDE [Concomitant]
     Active Substance: LOPERAMIDE
  10. FASLODEX [Suspect]
     Active Substance: FULVESTRANT
     Indication: BREAST CANCER METASTATIC
     Route: 058
     Dates: start: 201211, end: 201711
  11. ZOPICLONE [Concomitant]
     Active Substance: ZOPICLONE
  12. COLECALCIFEROL [Concomitant]
     Active Substance: CHOLECALCIFEROL
  13. CODEINE [Concomitant]
     Active Substance: CODEINE

REACTIONS (8)
  - Chronic hepatic failure [Unknown]
  - Peritoneal disorder [Unknown]
  - Hepatic cirrhosis [Fatal]
  - Liver disorder [Fatal]
  - Metastases to liver [Unknown]
  - Metastases to bone [Unknown]
  - Malignant neoplasm progression [Unknown]
  - Hepatic function abnormal [Fatal]

NARRATIVE: CASE EVENT DATE: 201211
